FAERS Safety Report 20171184 (Version 1)
Quarter: 2021Q4

REPORT INFORMATION
  Report Type: Spontaneous
  Country: US (occurrence: US)
  Receive Date: 20211210
  Receipt Date: 20211210
  Transmission Date: 20220303
  Serious: No
  Sender: FDA-Public Use
  Company Number: US-CELGENE-USA-20211200729

PATIENT
  Sex: Female
  Weight: 57.606 kg

DRUGS (1)
  1. POMALYST [Suspect]
     Active Substance: POMALIDOMIDE
     Indication: Plasma cell myeloma
     Dosage: 4 MILLIGRAM
     Route: 048
     Dates: start: 20210420

REACTIONS (2)
  - Protein total increased [Unknown]
  - Depression [Unknown]

NARRATIVE: CASE EVENT DATE: 20210101
